APPROVED DRUG PRODUCT: PIROXICAM
Active Ingredient: PIROXICAM
Strength: 10MG
Dosage Form/Route: CAPSULE;ORAL
Application: A207938 | Product #001
Applicant: FLAMINGO PHARMACEUTICALS LTD
Approved: Sep 9, 2016 | RLD: No | RS: No | Type: DISCN